FAERS Safety Report 23951350 (Version 1)
Quarter: 2024Q2

REPORT INFORMATION
  Report Type: Spontaneous
  Country: FR (occurrence: FR)
  Receive Date: 20240607
  Receipt Date: 20240607
  Transmission Date: 20240716
  Serious: Yes (Life-Threatening, Other)
  Sender: FDA-Public Use
  Company Number: FR-009507513-2405FRA006948

PATIENT
  Age: 50 Year
  Sex: Female
  Weight: 72 kg

DRUGS (6)
  1. CARBOPLATIN [Suspect]
     Active Substance: CARBOPLATIN
     Indication: Triple negative breast cancer
     Dosage: AREA UNDER CURVE (AUC) 1.5
     Dates: start: 20240308, end: 20240308
  2. CARBOPLATIN [Suspect]
     Active Substance: CARBOPLATIN
     Dosage: AREA UNDER CURVE (AUC) 1.5
     Dates: start: 20240315
  3. KEYTRUDA [Suspect]
     Active Substance: PEMBROLIZUMAB
     Indication: Triple negative breast cancer
     Dosage: 200 MILLIGRAM, Q3W?FOA - SOLUTION FOR INJECTION
     Route: 042
     Dates: start: 20240308, end: 20240308
  4. TAXOL [Suspect]
     Active Substance: PACLITAXEL
     Indication: Triple negative breast cancer
     Dosage: 80 MICROGRAM PER CUBIC METRE
     Dates: start: 20240308, end: 20240308
  5. TAXOL [Suspect]
     Active Substance: PACLITAXEL
     Dosage: 80 MICROGRAM PER CUBIC METRE
     Dates: start: 20240315
  6. ATENOLOL [Concomitant]
     Active Substance: ATENOLOL
     Indication: Product used for unknown indication

REACTIONS (5)
  - Toxic skin eruption [Recovering/Resolving]
  - Neutropenia [Unknown]
  - Roseolovirus test positive [Unknown]
  - Epstein-Barr virus test positive [Unknown]
  - Alanine aminotransferase increased [Unknown]

NARRATIVE: CASE EVENT DATE: 20240308
